FAERS Safety Report 24183357 (Version 3)
Quarter: 2024Q3

REPORT INFORMATION
  Report Type: Spontaneous
  Country: AU (occurrence: AU)
  Receive Date: 20240807
  Receipt Date: 20240826
  Transmission Date: 20241017
  Serious: Yes (Other)
  Sender: AMGEN
  Company Number: AU-AMGEN-AUSSP2024152989

PATIENT
  Sex: Female

DRUGS (1)
  1. ADALIMUMAB [Suspect]
     Active Substance: ADALIMUMAB
     Indication: Ankylosing spondylitis
     Dosage: UNK, Q2WK
     Route: 065
     Dates: start: 20240713, end: 20240728

REACTIONS (9)
  - Brain fog [Recovering/Resolving]
  - Nasal congestion [Recovering/Resolving]
  - Pressure of speech [Recovering/Resolving]
  - Abnormal dreams [Recovering/Resolving]
  - Tachyphrenia [Recovering/Resolving]
  - Hallucination, auditory [Recovering/Resolving]
  - Agitation [Recovering/Resolving]
  - Palpitations [Recovering/Resolving]
  - Insomnia [Recovering/Resolving]

NARRATIVE: CASE EVENT DATE: 20240713
